FAERS Safety Report 11211501 (Version 1)
Quarter: 2015Q2

REPORT INFORMATION
  Report Type: Spontaneous
  Country: CH (occurrence: None)
  Receive Date: 20150619
  Receipt Date: 20150619
  Transmission Date: 20150821
  Serious: Yes (Hospitalization, Other)
  Sender: FDA-Public Use
  Company Number: CH2015084227

PATIENT
  Age: 58 Year
  Sex: Female

DRUGS (7)
  1. REVLIMID [Suspect]
     Active Substance: LENALIDOMIDE
     Indication: ADULT T-CELL LYMPHOMA/LEUKAEMIA
     Route: 048
     Dates: start: 201502, end: 20150401
  2. PANTOPRAZOLE (PANTOPRAZOLE) [Concomitant]
     Active Substance: PANTOPRAZOLE SODIUM
  3. AMISULPRIDE (AMISULPRIDE) [Concomitant]
     Active Substance: AMISULPRIDE
  4. RIVOTRIL [Concomitant]
     Active Substance: CLONAZEPAM
  5. RETROVIR [Suspect]
     Active Substance: ZIDOVUDINE
     Indication: ADULT T-CELL LYMPHOMA/LEUKAEMIA
     Route: 048
     Dates: start: 201502, end: 20150401
  6. ISTODAX [Suspect]
     Active Substance: ROMIDEPSIN
     Indication: ADULT T-CELL LYMPHOMA/LEUKAEMIA
     Route: 048
     Dates: start: 201502, end: 20150401
  7. FLUOXETIN (FLUOXETINE HYDROCHLORIDE) [Concomitant]

REACTIONS (2)
  - Cardiac failure acute [None]
  - Acute pulmonary oedema [None]

NARRATIVE: CASE EVENT DATE: 20150331
